FAERS Safety Report 7353340-0 (Version None)
Quarter: 2011Q1

REPORT INFORMATION
  Report Type: 
  Country: None (occurrence: None)
  Receive Date: 20110315
  Receipt Date: 20110307
  Transmission Date: 20110831
  Serious: Yes (Congenital Anomaly)
  Sender: FDA-Public Use
  Company Number: DE-MERCK-1103DEU00041B1

PATIENT

DRUGS (1)
  1. COZAAR [Suspect]
     Indication: HYPERTENSION
     Route: 048

REACTIONS (3)
  - CONGENITAL INTESTINAL MALFORMATION [None]
  - VOLVULUS [None]
  - DRUG EXPOSURE DURING PREGNANCY [None]
